FAERS Safety Report 11740910 (Version 1)
Quarter: 2015Q4

REPORT INFORMATION
  Report Type: Spontaneous
  Country: GB (occurrence: GB)
  Receive Date: 20151115
  Receipt Date: 20151115
  Transmission Date: 20160304
  Serious: Yes (Other)
  Sender: FDA-Public Use
  Company Number: GB-TEVA-609724ISR

PATIENT

DRUGS (1)
  1. PACLITAXEL. [Suspect]
     Active Substance: PACLITAXEL
     Indication: PERIPHERAL ARTERY ANGIOPLASTY
     Dosage: PACLITAXEL COATED BALLOON

REACTIONS (1)
  - Aneurysm [Unknown]
